FAERS Safety Report 7995653-5 (Version None)
Quarter: 2011Q4

REPORT INFORMATION
  Report Type: 
  Country: None (occurrence: None)
  Receive Date: 20111220
  Receipt Date: 20110608
  Transmission Date: 20120403
  Serious: Yes (Other)
  Sender: FDA-Public Use
  Company Number: US-MYLANLABS-2011S1012047

PATIENT
  Sex: Male

DRUGS (1)
  1. SOTRADECOL [Suspect]
     Indication: VARICOSE VEIN
     Route: 042

REACTIONS (1)
  - NECROSIS [None]
